FAERS Safety Report 8158967-4 (Version None)
Quarter: 2012Q1

REPORT INFORMATION
  Report Type: 
  Country: None (occurrence: None)
  Receive Date: 20120223
  Receipt Date: 20120221
  Transmission Date: 20120608
  Serious: No
  Sender: FDA-Public Use
  Company Number: US-PFIZER INC-2012047125

PATIENT
  Sex: Male
  Weight: 111 kg

DRUGS (3)
  1. CHANTIX [Suspect]
     Indication: SMOKING CESSATION THERAPY
     Dosage: 0.5 MG, DAILY
     Route: 048
     Dates: start: 20120101, end: 20120101
  2. CHANTIX [Suspect]
     Dosage: 1 MG, 2X/DAY
     Route: 048
     Dates: start: 20120101
  3. SUBOXONE [Concomitant]
     Indication: PROPHYLAXIS
     Dosage: UNK

REACTIONS (4)
  - GINGIVAL PAIN [None]
  - SWOLLEN TONGUE [None]
  - TOOTHACHE [None]
  - GLOSSODYNIA [None]
